FAERS Safety Report 8509658-9 (Version None)
Quarter: 2012Q3

REPORT INFORMATION
  Report Type: 
  Country: None (occurrence: None)
  Receive Date: 20120713
  Receipt Date: 20120507
  Transmission Date: 20120928
  Serious: Yes (Hospitalization, Disabling, Other)
  Sender: FDA-Public Use
  Company Number: US-BAYER-2012-045461

PATIENT
  Sex: Female

DRUGS (2)
  1. YAZ [Suspect]
     Dosage: UNK
  2. TRI-SPRINTEC [Suspect]

REACTIONS (9)
  - INJURY [None]
  - DISABILITY [None]
  - PULMONARY EMBOLISM [None]
  - PAIN [None]
  - ANXIETY [None]
  - TRAUMATIC LUNG INJURY [None]
  - FEAR [None]
  - EMOTIONAL DISTRESS [None]
  - ANHEDONIA [None]
